FAERS Safety Report 4330592-2 (Version None)
Quarter: 2004Q2

REPORT INFORMATION
  Report Type: 
  Country: None (occurrence: None)
  Receive Date: 20040402
  Receipt Date: 20040224
  Transmission Date: 20050107
  Serious: Yes (Other)
  Sender: FDA-Public Use
  Company Number: JP-ROCHE-359984

PATIENT
  Age: 87 Year
  Sex: Female
  Weight: 36 kg

DRUGS (3)
  1. TAMIFLU [Suspect]
     Route: 048
     Dates: start: 20040209, end: 20040213
  2. COLD MEDICATION NOS [Concomitant]
     Dosage: TRADE NAME: TOWATHIEM (NON-PYRINE PREPARATION FOR COLD SYNDROME).
     Route: 048
     Dates: start: 20040209, end: 20040215
  3. LAXATIVE NOS [Concomitant]
     Indication: CONSTIPATION
     Dates: start: 20040214, end: 20040214

REACTIONS (6)
  - HEPATIC FUNCTION ABNORMAL [None]
  - ILEUS [None]
  - ILEUS PARALYTIC [None]
  - INFLUENZA [None]
  - PNEUMONIA [None]
  - PNEUMONIA ASPIRATION [None]
